FAERS Safety Report 26216256 (Version 1)
Quarter: 2025Q4

REPORT INFORMATION
  Report Type: Spontaneous
  Country: US (occurrence: US)
  Receive Date: 20251231
  Receipt Date: 20251231
  Transmission Date: 20260117
  Serious: Yes (Other)
  Sender: NOBELPHARMA
  Company Number: US-NPA-2025-AER-02268

PATIENT
  Age: 27 Year
  Sex: Female

DRUGS (6)
  1. HYFTOR [Suspect]
     Active Substance: SIROLIMUS
     Indication: Tuberous sclerosis complex
     Route: 065
     Dates: start: 20250717
  2. KEPPRA [Concomitant]
     Active Substance: LEVETIRACETAM
  3. LACOSAMIDE [Concomitant]
     Active Substance: LACOSAMIDE
  4. PHENYTOIN [Concomitant]
     Active Substance: PHENYTOIN
  5. VIMPAT [Concomitant]
     Active Substance: LACOSAMIDE
  6. ZONISAMIDE [Concomitant]
     Active Substance: ZONISAMIDE

REACTIONS (1)
  - Seizure [Unknown]

NARRATIVE: CASE EVENT DATE: 20251223
